FAERS Safety Report 5582445-X (Version None)
Quarter: 2007Q4

REPORT INFORMATION
  Report Type: 
  Country: None (occurrence: None)
  Receive Date: 20071130
  Receipt Date: 20070103
  Transmission Date: 20080405
  Serious: Yes (Hospitalization)
  Sender: FDA-Public Use
  Company Number: WAES 0701USA00380

PATIENT
  Age: 50 Year
  Sex: Female

DRUGS (3)
  1. FOSAMAX [Suspect]
     Indication: OSTEOPOROSIS
     Dosage: 70 MG/WKY/PO
     Route: 048
     Dates: start: 20061215, end: 20061231
  2. OXYCONTIN [Concomitant]
  3. RITALIN [Concomitant]

REACTIONS (2)
  - CARDIAC STRESS TEST ABNORMAL [None]
  - DYSPEPSIA [None]
